FAERS Safety Report 9431048 (Version 1)
Quarter: 2013Q3

REPORT INFORMATION
  Report Type: Spontaneous
  Country: US (occurrence: US)
  Receive Date: 20130730
  Receipt Date: 20130730
  Transmission Date: 20140515
  Serious: Yes (Hospitalization)
  Sender: FDA-Public Use
  Company Number: US-BAYER-2013-090478

PATIENT
  Age: 39 Year
  Sex: Female
  Weight: 62.13 kg

DRUGS (4)
  1. YASMIN [Suspect]
  2. YAZ [Suspect]
     Indication: ACNE
     Dosage: UNK
     Dates: start: 20070726, end: 200803
  3. YAZ [Suspect]
     Indication: MIGRAINE
  4. AUGMENTIN [Concomitant]
     Dosage: 875 MG, UNK

REACTIONS (1)
  - Deep vein thrombosis [Recovered/Resolved]
